FAERS Safety Report 22846862 (Version 2)
Quarter: 2023Q4

REPORT INFORMATION
  Report Type: Spontaneous
  Country: US (occurrence: US)
  Receive Date: 20230822
  Receipt Date: 20231113
  Transmission Date: 20240110
  Serious: No
  Sender: FDA-Public Use
  Company Number: US-SA-SAC20230821000377

PATIENT
  Age: 32 Year
  Sex: Male

DRUGS (1)
  1. DUPIXENT [Suspect]
     Active Substance: DUPILUMAB
     Indication: Dermatitis
     Dosage: 300 MG, QOW
     Route: 058

REACTIONS (6)
  - Skin haemorrhage [Unknown]
  - Product dose omission issue [Unknown]
  - Scratch [Unknown]
  - Muscle spasms [Unknown]
  - Lack of injection site rotation [Unknown]
  - Product use in unapproved indication [Unknown]
